FAERS Safety Report 5195097-8 (Version None)
Quarter: 2006Q4

REPORT INFORMATION
  Report Type: 
  Country: None (occurrence: None)
  Receive Date: 20061229
  Receipt Date: 20061127
  Transmission Date: 20070319
  Serious: Yes (Other)
  Sender: FDA-Public Use
  Company Number: US-SHR-US-2006-037053

PATIENT
  Age: 39 Year
  Sex: Female
  Weight: 90.703 kg

DRUGS (7)
  1. BETASERON [Suspect]
     Dosage: 8 MIU, EVERY 2D
     Dates: start: 20060523
  2. HUMATE-P [Concomitant]
     Dosage: UNK, 3X/WEEK
     Dates: start: 19920101
  3. CYMBALTA [Concomitant]
  4. REQUIP [Concomitant]
  5. ULTRAM [Concomitant]
  6. SYNTHROID [Concomitant]
  7. CORTICOSTEROIDS [Concomitant]

REACTIONS (4)
  - BLINDNESS UNILATERAL [None]
  - CONTUSION [None]
  - HEPATITIS C POSITIVE [None]
  - WRONG TECHNIQUE IN DRUG USAGE PROCESS [None]
